FAERS Safety Report 8059058-3 (Version None)
Quarter: 2012Q1

REPORT INFORMATION
  Report Type: 
  Country: None (occurrence: None)
  Receive Date: 20120120
  Receipt Date: 20110614
  Transmission Date: 20120608
  Serious: No
  Sender: FDA-Public Use
  Company Number: US-BAUSCH-2011BL003923

PATIENT
  Age: 8 Year
  Sex: Male

DRUGS (3)
  1. ALAWAY [Suspect]
     Indication: OCULAR HYPERAEMIA
     Route: 047
     Dates: start: 20110611
  2. ALAWAY [Suspect]
     Indication: EYE PRURITUS
     Route: 047
     Dates: start: 20110611
  3. ARTIFICIAL TEARS [Concomitant]
     Indication: EYE IRRIGATION
     Route: 047

REACTIONS (1)
  - EYE IRRITATION [None]
